FAERS Safety Report 7311959-7 (Version None)
Quarter: 2011Q1

REPORT INFORMATION
  Report Type: 
  Country: None (occurrence: None)
  Receive Date: 20110224
  Receipt Date: 20110215
  Transmission Date: 20110831
  Serious: Yes (Death, Hospitalization)
  Sender: FDA-Public Use
  Company Number: US-SANOFI-AVENTIS-2010SA074409

PATIENT
  Sex: Male
  Weight: 59 kg

DRUGS (7)
  1. ASPIRIN [Suspect]
     Route: 065
     Dates: start: 20080801, end: 20080930
  2. PLAVIX [Suspect]
     Indication: THROMBOSIS PROPHYLAXIS
     Route: 048
     Dates: start: 20080824, end: 20080930
  3. PROPRANOLOL [Concomitant]
     Indication: BLOOD PRESSURE
  4. ATORVASTATIN [Suspect]
     Route: 065
     Dates: start: 20050101, end: 20080930
  5. PLAVIX [Suspect]
     Route: 048
     Dates: start: 20080824, end: 20080930
  6. AGGRENOX [Concomitant]
     Route: 065
     Dates: start: 20050701, end: 20080801
  7. ASPIRIN [Suspect]
     Route: 065
     Dates: start: 20080801, end: 20080930

REACTIONS (10)
  - COMA [None]
  - HEMIPARESIS [None]
  - FALL [None]
  - CEREBROVASCULAR ACCIDENT [None]
  - ASTHENIA [None]
  - CONFUSIONAL STATE [None]
  - CARDIAC ARREST [None]
  - DYSARTHRIA [None]
  - BLOOD URINE PRESENT [None]
  - HYPOAESTHESIA [None]
